FAERS Safety Report 11246435 (Version 1)
Quarter: 2015Q3

REPORT INFORMATION
  Report Type: Spontaneous
  Country: US (occurrence: None)
  Receive Date: 20150706
  Receipt Date: 20150706
  Transmission Date: 20151125
  Serious: No
  Sender: FDA-Public Use
  Company Number: None

PATIENT
  Age: 64 Year
  Sex: Female
  Weight: 84.82 kg

DRUGS (8)
  1. LEVOFLOXCIN [Suspect]
     Active Substance: LEVOFLOXACIN
     Indication: PLEURAL EFFUSION
     Dosage: 1 TAB
     Route: 048
     Dates: start: 20150701, end: 20150701
  2. ALLBUTEROL FOR NEBULIZER [Concomitant]
  3. PROBIOTIC [Concomitant]
     Active Substance: PROBIOTICS NOS
  4. AREDS 2 [Concomitant]
  5. LEVOFLOXCIN [Suspect]
     Active Substance: LEVOFLOXACIN
     Indication: LUNG INFECTION
     Dosage: 1 TAB
     Route: 048
     Dates: start: 20150701, end: 20150701
  6. PROAIR HFA [Concomitant]
     Active Substance: ALBUTEROL SULFATE
  7. FISH OIL [Concomitant]
     Active Substance: FISH OIL
  8. VIT B [Concomitant]
     Active Substance: VITAMINS

REACTIONS (5)
  - Flushing [None]
  - Pruritus [None]
  - Urticaria [None]
  - Dyspnoea [None]
  - Nausea [None]

NARRATIVE: CASE EVENT DATE: 20150701
